FAERS Safety Report 5529600-2 (Version None)
Quarter: 2007Q4

REPORT INFORMATION
  Report Type: 
  Country: None (occurrence: None)
  Receive Date: 20071129
  Receipt Date: 20071120
  Transmission Date: 20080405
  Serious: Yes (Death)
  Sender: FDA-Public Use
  Company Number: JP-PFIZER INC-2007069142

PATIENT
  Sex: Male

DRUGS (7)
  1. ZITHROMAX [Suspect]
     Indication: INFECTION PROPHYLAXIS
     Dosage: DAILY DOSE:1200MG
     Route: 048
     Dates: start: 20060401, end: 20060518
  2. EPIVIR [Concomitant]
     Indication: HIV INFECTION
     Route: 048
  3. NORVIR [Concomitant]
     Indication: HIV INFECTION
     Route: 048
  4. REYATAZ [Concomitant]
     Indication: HIV INFECTION
     Route: 048
  5. VIREAD [Concomitant]
     Indication: HIV INFECTION
     Route: 048
  6. LENDORMIN [Concomitant]
     Indication: INSOMNIA
     Route: 048
  7. PENTAMIDINE ISETHIONATE [Concomitant]

REACTIONS (1)
  - COMPLETED SUICIDE [None]
